FAERS Safety Report 4885721-9 (Version None)
Quarter: 2006Q1

REPORT INFORMATION
  Report Type: 
  Country: None (occurrence: None)
  Receive Date: 20060117
  Receipt Date: 20060102
  Transmission Date: 20060701
  Serious: Yes (Other)
  Sender: FDA-Public Use
  Company Number: 2006-DE-00010GD

PATIENT
  Sex: 0

DRUGS (4)
  1. ASPIRIN [Suspect]
     Indication: ANTIPLATELET THERAPY
     Dosage: 200 MG (ONCE A DAY)
  2. CILOSTAZOL [Suspect]
     Indication: ANTIPLATELET THERAPY
  3. THIENOPYRIDINE (PLATELET AGGREGATION INHIBITORS) [Suspect]
     Indication: ANTIPLATELET THERAPY
     Dosage: MAINTENANCE DOSE OF 75 MG QD CLOPIDOGREL OR 250 MG BID TICLOPIDINE
  4. HEPARIN [Suspect]
     Indication: ANTICOAGULANT THERAPY
     Dosage: TO MAINTAIN THE ACTIVATED CLOTTING TIME }/ = 250 S

REACTIONS (2)
  - POST PROCEDURAL COMPLICATION [None]
  - THROMBOSIS IN DEVICE [None]
